FAERS Safety Report 5039402-1 (Version None)
Quarter: 2006Q2

REPORT INFORMATION
  Report Type: 
  Country: None (occurrence: None)
  Receive Date: 20060629
  Receipt Date: 20060619
  Transmission Date: 20061013
  Serious: Yes (Other)
  Sender: FDA-Public Use
  Company Number: US-JNJFOC-20060601863

PATIENT
  Sex: Female
  Weight: 111.59 kg

DRUGS (5)
  1. TOPAMAX [Suspect]
     Indication: NEURALGIA
  2. DIAZIDE [Concomitant]
  3. BETA BLOCKER [Concomitant]
  4. ASPIRIN [Concomitant]
  5. GLUCOPHAGE [Concomitant]

REACTIONS (5)
  - CONFUSIONAL STATE [None]
  - COORDINATION ABNORMAL [None]
  - FEELING ABNORMAL [None]
  - HEAT STROKE [None]
  - LOSS OF CONSCIOUSNESS [None]
